FAERS Safety Report 19663764 (Version 2)
Quarter: 2021Q4

REPORT INFORMATION
  Report Type: Spontaneous
  Country: IT (occurrence: IT)
  Receive Date: 20210806
  Receipt Date: 20211102
  Transmission Date: 20220303
  Serious: Yes (Hospitalization, Other)
  Sender: FDA-Public Use
  Company Number: IT-MINISAL02-760251

PATIENT
  Age: 41 Year
  Sex: Female

DRUGS (2)
  1. QUETIAPINE [Suspect]
     Active Substance: QUETIAPINE
     Indication: Personality disorder
     Dosage: 2250 MILLIGRAM (TOTAL)
     Route: 048
  2. TRIAZOLAM [Suspect]
     Active Substance: TRIAZOLAM
     Indication: Personality disorder
     Dosage: 1.5 MILLIGRAM (TOTAL)
     Route: 048
     Dates: start: 20210601

REACTIONS (2)
  - Drug abuse [Unknown]
  - Hypotension [Unknown]

NARRATIVE: CASE EVENT DATE: 20210625
